FAERS Safety Report 4760185-4 (Version None)
Quarter: 2005Q3

REPORT INFORMATION
  Report Type: 
  Country: None (occurrence: None)
  Receive Date: 20050831
  Receipt Date: 20050831
  Transmission Date: 20060218
  Serious: Yes (Hospitalization)
  Sender: FDA-Public Use
  Company Number: None

PATIENT
  Age: 35 Year
  Sex: Male

DRUGS (6)
  1. ESKALITH [Suspect]
     Indication: SCHIZOPHRENIA
     Dosage: PO
     Route: 048
  2. NORVASC [Concomitant]
  3. TENORMIN [Concomitant]
  4. CLOZARIL [Concomitant]
  5. AMITRIPTYLINE-ELAVIL [Concomitant]
  6. HYDROCHLOROTHIAZIDE-MICROZIDE [Concomitant]

REACTIONS (11)
  - ANTIPSYCHOTIC DRUG LEVEL ABOVE THERAPEUTIC [None]
  - ASTHENIA [None]
  - DIALYSIS [None]
  - DIARRHOEA [None]
  - DIZZINESS [None]
  - ELECTROCARDIOGRAM QT PROLONGED [None]
  - MUSCLE SPASMS [None]
  - NEPHROGENIC DIABETES INSIPIDUS [None]
  - PAIN [None]
  - PYREXIA [None]
  - VOMITING [None]
